FAERS Safety Report 11860504 (Version 1)
Quarter: 2015Q4

REPORT INFORMATION
  Report Type: Spontaneous
  Country: CN (occurrence: CN)
  Receive Date: 20151222
  Receipt Date: 20151222
  Transmission Date: 20160305
  Serious: Yes (Hospitalization, Other)
  Sender: FDA-Public Use
  Company Number: CN-GLAXOSMITHKLINE-CN2015GSK177049

PATIENT
  Age: 77 Year
  Sex: Male
  Weight: 59 kg

DRUGS (1)
  1. SERETIDE [Suspect]
     Active Substance: FLUTICASONE FUROATE\SALMETEROL XINAFOATE
     Indication: CHRONIC OBSTRUCTIVE PULMONARY DISEASE
     Dosage: 1 PUFF(S), QD
     Route: 055

REACTIONS (6)
  - Dysuria [Not Recovered/Not Resolved]
  - Off label use [Unknown]
  - Urinary retention [Recovered/Resolved]
  - Inappropriate schedule of drug administration [Unknown]
  - Tremor [Unknown]
  - Disease recurrence [Unknown]

NARRATIVE: CASE EVENT DATE: 2015
